APPROVED DRUG PRODUCT: VIGABATRIN
Active Ingredient: VIGABATRIN
Strength: 500MG/PACKET
Dosage Form/Route: FOR SOLUTION;ORAL
Application: A209824 | Product #001
Applicant: TEVA PHARMACEUTICALS USA
Approved: Apr 23, 2018 | RLD: No | RS: No | Type: DISCN